FAERS Safety Report 23301112 (Version 1)
Quarter: 2023Q4

REPORT INFORMATION
  Report Type: Spontaneous
  Country: US (occurrence: None)
  Receive Date: 20231214
  Receipt Date: 20231214
  Transmission Date: 20240110
  Serious: Yes (Other)
  Sender: FDA-Public Use
  Company Number: None

PATIENT
  Age: 61 Year
  Sex: Male

DRUGS (2)
  1. ENBREL [Suspect]
     Active Substance: ETANERCEPT
     Indication: Psoriatic arthropathy
     Dosage: FREQUENCY : WEEKLY;?
     Route: 058
     Dates: start: 20230802
  2. ENBREL [Concomitant]
     Active Substance: ETANERCEPT
     Dates: start: 20230803, end: 20231109

REACTIONS (2)
  - Hypersensitivity [None]
  - Creatinine renal clearance increased [None]

NARRATIVE: CASE EVENT DATE: 20231109
